FAERS Safety Report 22264210 (Version 2)
Quarter: 2023Q2

REPORT INFORMATION
  Report Type: Spontaneous
  Country: US (occurrence: US)
  Receive Date: 20230428
  Receipt Date: 20230509
  Transmission Date: 20230721
  Serious: Yes (Other)
  Sender: FDA-Public Use
  Company Number: US-PFIZER INC-202101588284

PATIENT
  Age: 74 Year
  Sex: Male

DRUGS (1)
  1. XELJANZ [Suspect]
     Active Substance: TOFACITINIB CITRATE
     Dosage: 5 MG, 2X/DAY

REACTIONS (6)
  - Diabetes mellitus inadequate control [Unknown]
  - Knee arthroplasty [Unknown]
  - Circumstance or information capable of leading to medication error [Unknown]
  - Gait disturbance [Unknown]
  - Dysstasia [Unknown]
  - Musculoskeletal stiffness [Unknown]
